FAERS Safety Report 8389011 (Version 2)
Quarter: 2012Q4

REPORT INFORMATION
  Report Type: 
  Country: CA (occurrence: CA)
  Receive Date: 20120203
  Receipt Date: 20121128
  Transmission Date: 20130627
  Serious: Yes (Other)
  Sender: FDA-Public Use
  Company Number: CA-AMGEN-CANSP2011058359

PATIENT
  Age: 63 Year
  Sex: Female

DRUGS (6)
  1. ENBREL [Suspect]
     Indication: RHEUMATOID ARTHRITIS
     Dosage: 50 mg, qwk
     Dates: start: 20111013, end: 20111026
  2. ARAVA [Concomitant]
     Dosage: 20 mg, qd
     Route: 048
     Dates: start: 2001
  3. PLAQUENIL                          /00072602/ [Concomitant]
     Dosage: UNK
  4. PREDNISONE [Concomitant]
     Dosage: 1 mg, bid
     Route: 048
  5. PREDNISONE [Concomitant]
     Dosage: 1 mg, q6h
  6. OXAPROZIN [Concomitant]
     Dosage: UNK

REACTIONS (13)
  - Swollen tongue [Unknown]
  - Paraesthesia [Recovered/Resolved]
  - Rash macular [Unknown]
  - Hypersensitivity [Recovered/Resolved]
  - Joint swelling [Unknown]
  - Arthralgia [Unknown]
  - Nasal discomfort [Unknown]
  - Pharyngeal disorder [Unknown]
  - Tongue discolouration [Unknown]
  - Dysgeusia [Unknown]
  - Pruritus [Unknown]
  - Injection site erythema [Unknown]
  - Injection site swelling [Unknown]
